FAERS Safety Report 6763368-7 (Version None)
Quarter: 2010Q2

REPORT INFORMATION
  Report Type: 
  Country: None (occurrence: None)
  Receive Date: 20100610
  Receipt Date: 20100603
  Transmission Date: 20101027
  Serious: Yes (Other)
  Sender: FDA-Public Use
  Company Number: DK-BAYER-201026605GPV

PATIENT
  Age: 45 Year
  Sex: Female

DRUGS (1)
  1. MIRENA [Suspect]
     Indication: METRORRHAGIA
     Route: 015
     Dates: start: 20090813, end: 20091021

REACTIONS (3)
  - BLINDNESS TRANSIENT [None]
  - RETINAL INFARCTION [None]
  - VISION BLURRED [None]
